FAERS Safety Report 5752813-1 (Version None)
Quarter: 2008Q2

REPORT INFORMATION
  Report Type: 
  Country: None (occurrence: None)
  Receive Date: 20080527
  Receipt Date: 20080527
  Transmission Date: 20081010
  Serious: Yes (Life-Threatening, Hospitalization)
  Sender: FDA-Public Use
  Company Number: None

PATIENT
  Age: 10 Month
  Sex: Male
  Weight: 9.0719 kg

DRUGS (6)
  1. OMNICEF [Suspect]
     Indication: EAR INFECTION
     Dosage: 125MG/5ML SUSP P-D  3 CC TWICE DAY PO
     Route: 048
     Dates: start: 20080301, end: 20080311
  2. CEFDINIR [Suspect]
     Indication: EAR INFECTION
     Dosage: 125 MG/5ML SUSP  3 ML TWICE A DAY  PO
     Route: 048
     Dates: start: 20080328, end: 20080329
  3. ZITHROMAX [Concomitant]
  4. ATROVENT [Concomitant]
  5. XOPONEX [Concomitant]
  6. PREDLISONE [Concomitant]

REACTIONS (31)
  - ABNORMAL BEHAVIOUR [None]
  - ABNORMAL FAECES [None]
  - ACUTE RESPIRATORY DISTRESS SYNDROME [None]
  - ANGER [None]
  - ASTHENIA [None]
  - BLOOD CREATININE DECREASED [None]
  - BRONCHIOLITIS [None]
  - CONSTIPATION [None]
  - CRYING [None]
  - DEHYDRATION [None]
  - DEPRESSED MOOD [None]
  - DIARRHOEA [None]
  - DRUG INEFFECTIVE [None]
  - DYSURIA [None]
  - EYE DISCHARGE [None]
  - EYE SWELLING [None]
  - HAEMATOCHEZIA [None]
  - LETHARGY [None]
  - MUSCLE SPASMS [None]
  - ORAL INTAKE REDUCED [None]
  - PAINFUL DEFAECATION [None]
  - PNEUMONIA [None]
  - PYREXIA [None]
  - RASH [None]
  - SKIN DISCOLOURATION [None]
  - SKIN EXFOLIATION [None]
  - SLEEP TERROR [None]
  - SOMNOLENCE [None]
  - VOMITING [None]
  - WEIGHT DECREASED [None]
  - YELLOW SKIN [None]
